FAERS Safety Report 24439341 (Version 1)
Quarter: 2024Q4

REPORT INFORMATION
  Report Type: Spontaneous
  Country: CN (occurrence: CN)
  Receive Date: 20241015
  Receipt Date: 20241015
  Transmission Date: 20250115
  Serious: No
  Sender: MERCK
  Company Number: CN-009507513-2410CHN005182

PATIENT
  Age: 71 Year
  Sex: Male

DRUGS (4)
  1. MOLNUPIRAVIR [Suspect]
     Active Substance: MOLNUPIRAVIR
     Indication: COVID-19
     Dosage: UNK
     Route: 048
     Dates: start: 2023
  2. RO-0622 [Concomitant]
     Active Substance: RO-0622
     Indication: Antiviral treatment
  3. BARICITINIB [Concomitant]
     Active Substance: BARICITINIB
     Dosage: UNK
     Dates: start: 2023
  4. METHYLPREDNISOLONE [Concomitant]
     Active Substance: METHYLPREDNISOLONE

REACTIONS (1)
  - Product use in unapproved indication [Unknown]

NARRATIVE: CASE EVENT DATE: 20230101
